FAERS Safety Report 4928133-1 (Version None)
Quarter: 2006Q1

REPORT INFORMATION
  Report Type: 
  Country: None (occurrence: None)
  Receive Date: 20060223
  Receipt Date: 20060214
  Transmission Date: 20060701
  Serious: Yes (Hospitalization, Other)
  Sender: FDA-Public Use
  Company Number: HQWYE610801FEB06

PATIENT
  Age: 57 Year
  Sex: Male

DRUGS (1)
  1. GEMCITABINE, CONTROL FOR TEMSIROLIMUS (GEMCITABINE, CONTROL FOR TEMSIR [Suspect]
     Indication: MANTLE CELL LYMPHOMA
     Dosage: 2100 MG 1X PER 1 WK   INTRAVENOUS
     Route: 042
     Dates: start: 20050722

REACTIONS (6)
  - HAEMATOCRIT DECREASED [None]
  - HAEMOGLOBIN DECREASED [None]
  - PLATELET COUNT DECREASED [None]
  - PNEUMONIA [None]
  - RED BLOOD CELL COUNT DECREASED [None]
  - WHITE BLOOD CELL COUNT DECREASED [None]
